FAERS Safety Report 11937972 (Version 1)
Quarter: 2016Q1

REPORT INFORMATION
  Report Type: Spontaneous
  Country: CA (occurrence: None)
  Receive Date: 20160120
  Receipt Date: 20160120
  Transmission Date: 20160526
  Serious: Yes (Death, Hospitalization)
  Sender: FDA-Public Use
  Company Number: None

PATIENT
  Age: 12 Year
  Sex: Male
  Weight: 67 kg

DRUGS (6)
  1. METHOTREXATE [Suspect]
     Active Substance: METHOTREXATE
     Dates: end: 20151123
  2. ONCASPAR [Suspect]
     Active Substance: PEGASPARGASE
     Dates: end: 20150911
  3. PREDNISONE. [Suspect]
     Active Substance: PREDNISONE
     Dates: end: 20150823
  4. CYTARABINE. [Suspect]
     Active Substance: CYTARABINE
     Dates: end: 20150727
  5. DAUNORUBICIN [Suspect]
     Active Substance: DAUNORUBICIN
     Dates: end: 20150817
  6. VINCRISTINE SULFATE. [Suspect]
     Active Substance: VINCRISTINE SULFATE
     Dates: end: 20150918

REACTIONS (6)
  - Device related infection [None]
  - Sepsis [None]
  - Hypotension [None]
  - Hepatic lesion [None]
  - Haemodynamic instability [None]
  - Coagulopathy [None]

NARRATIVE: CASE EVENT DATE: 20151203
